FAERS Safety Report 24937710 (Version 1)
Quarter: 2025Q1

REPORT INFORMATION
  Report Type: Spontaneous
  Country: US (occurrence: None)
  Receive Date: 20250206
  Receipt Date: 20250206
  Transmission Date: 20250409
  Serious: No
  Sender: FDA-CTU
  Company Number: None

PATIENT
  Sex: Male

DRUGS (3)
  1. SIROLIMUS [Suspect]
     Active Substance: SIROLIMUS
     Indication: Heart transplant
     Dosage: FREQUENCY : 4 TIMES A DAY;?
     Route: 048
     Dates: start: 202105
  2. ENTECAVIR [Concomitant]
     Active Substance: ENTECAVIR
  3. TACROLIMUS (BIOCON) [Concomitant]

REACTIONS (2)
  - Pancreatitis [None]
  - Unevaluable event [None]
